FAERS Safety Report 5765312-8 (Version None)
Quarter: 2008Q2

REPORT INFORMATION
  Report Type: 
  Country: None (occurrence: None)
  Receive Date: 20080609
  Receipt Date: 20080609
  Transmission Date: 20081010
  Serious: Yes (Other)
  Sender: FDA-Public Use
  Company Number: None

PATIENT
  Age: 69 Year
  Sex: Female
  Weight: 77.1115 kg

DRUGS (2)
  1. BYETTA [Suspect]
     Indication: TYPE 2 DIABETES MELLITUS
     Dosage: 5MG  TWICE A DAY
     Dates: start: 20070901, end: 20080425
  2. METFORMIN HCL [Concomitant]

REACTIONS (1)
  - MALIGNANT PERITONEAL NEOPLASM [None]
